FAERS Safety Report 5455093-X (Version None)
Quarter: 2007Q3

REPORT INFORMATION
  Report Type: 
  Country: None (occurrence: None)
  Receive Date: 20070913
  Receipt Date: 20070913
  Transmission Date: 20080115
  Serious: Yes (Other)
  Sender: FDA-Public Use
  Company Number: None

PATIENT
  Age: 65 Year
  Sex: Female
  Weight: 61.2356 kg

DRUGS (1)
  1. METAMUCIL-2 [Suspect]
     Indication: IRRITABLE BOWEL SYNDROME
     Dosage: 2 CAPSULES BID PO
     Route: 048

REACTIONS (4)
  - DRUG HYPERSENSITIVITY [None]
  - FEELING HOT [None]
  - PARAESTHESIA [None]
  - PRURITUS [None]
